FAERS Safety Report 10682721 (Version 1)
Quarter: 2014Q4

REPORT INFORMATION
  Report Type: Spontaneous
  Country: IT (occurrence: IT)
  Receive Date: 20141230
  Receipt Date: 20141230
  Transmission Date: 20150529
  Serious: Yes (Hospitalization)
  Sender: FDA-Public Use
  Company Number: PHHY2014IT168942

PATIENT
  Age: 70 Year
  Sex: Male
  Weight: 75 kg

DRUGS (3)
  1. IRBESARTAN AND HYDROCHLOROTHIAZIDE [Concomitant]
     Active Substance: HYDROCHLOROTHIAZIDE\IRBESARTAN
     Indication: HYPERTENSION
     Dosage: 1 DF, QD (150MG/12.5MG)
     Route: 065
  2. METFORMIN [Suspect]
     Active Substance: METFORMIN HYDROCHLORIDE
     Indication: TYPE 2 DIABETES MELLITUS
     Dosage: 3000 MG, QD
     Route: 065
  3. TAMSULOSIN [Concomitant]
     Active Substance: TAMSULOSIN
     Indication: HYPERTENSION
     Dosage: 0.4 MG, QD
     Route: 065

REACTIONS (10)
  - Tachypnoea [Recovered/Resolved]
  - Abdominal pain [Recovered/Resolved]
  - Dehydration [Recovered/Resolved]
  - Lactic acidosis [Recovered/Resolved]
  - Anuria [Recovered/Resolved]
  - Gastrointestinal stoma complication [Recovered/Resolved]
  - Acute kidney injury [Recovered/Resolved]
  - Vomiting [Recovered/Resolved]
  - Nausea [Recovered/Resolved]
  - Depressed level of consciousness [Recovered/Resolved]
